FAERS Safety Report 7093873-8 (Version None)
Quarter: 2010Q4

REPORT INFORMATION
  Report Type: 
  Country: None (occurrence: None)
  Receive Date: 20101110
  Receipt Date: 20101101
  Transmission Date: 20110411
  Serious: Yes (Hospitalization)
  Sender: FDA-Public Use
  Company Number: B0682942A

PATIENT
  Age: 31 Year
  Sex: Male
  Weight: 59 kg

DRUGS (6)
  1. SALBUTAMOL [Suspect]
     Dosage: 10ML PER DAY
     Route: 055
  2. UNKNOWN DRUG [Suspect]
     Indication: NASOPHARYNGITIS
     Dosage: 30TAB PER DAY
     Route: 055
  3. MEPTIN [Suspect]
     Dosage: 1.8ML PER DAY
     Route: 055
  4. INTAL [Suspect]
     Dosage: 28ML PER DAY
     Route: 055
  5. ACETAMINOPHEN [Suspect]
     Dosage: 3G PER DAY
  6. METHYLEPHEDRINE [Suspect]
     Dosage: 200MG PER DAY

REACTIONS (7)
  - DRUG TOXICITY [None]
  - HYPOKALAEMIA [None]
  - NAUSEA [None]
  - OVERDOSE [None]
  - SUICIDE ATTEMPT [None]
  - TACHYCARDIA [None]
  - TREMOR [None]
